FAERS Safety Report 11167922 (Version 1)
Quarter: 2015Q2

REPORT INFORMATION
  Report Type: Report from Study
  Country: US (occurrence: US)
  Receive Date: 20150605
  Receipt Date: 20150605
  Transmission Date: 20150821
  Serious: Yes (Other)
  Sender: FDA-Public Use
  Company Number: US-SA-2015SA059857

PATIENT
  Age: 32 Year
  Sex: Male

DRUGS (1)
  1. LEMTRADA [Suspect]
     Active Substance: ALEMTUZUMAB
     Indication: MULTIPLE SCLEROSIS
     Route: 041
     Dates: start: 20150413, end: 20150417

REACTIONS (5)
  - Sleep disorder [Unknown]
  - Muscle spasms [Unknown]
  - Pulmonary congestion [Unknown]
  - Pain in extremity [Unknown]
  - Abasia [Recovered/Resolved]

NARRATIVE: CASE EVENT DATE: 2015
